FAERS Safety Report 18472812 (Version 1)
Quarter: 2020Q4

REPORT INFORMATION
  Report Type: Spontaneous
  Country: US (occurrence: US)
  Receive Date: 20201105
  Receipt Date: 20201105
  Transmission Date: 20210114
  Serious: Yes (Hospitalization)
  Sender: FDA-Public Use
  Company Number: None

PATIENT
  Sex: Male

DRUGS (9)
  1. LEXAPRO [Concomitant]
     Active Substance: ESCITALOPRAM OXALATE
  2. MICROLET [Concomitant]
  3. CAPECITABINE. [Suspect]
     Active Substance: CAPECITABINE
     Indication: RECTAL CANCER
     Route: 048
     Dates: start: 20200917
  4. COZAAR [Concomitant]
     Active Substance: LOSARTAN POTASSIUM
  5. LOVASTATIN. [Concomitant]
     Active Substance: LOVASTATIN
  6. BD PEN NEEDL MS [Concomitant]
  7. LANTUS SOLOS INJ [Concomitant]
  8. LUNESTA [Concomitant]
     Active Substance: ESZOPICLONE
  9. CONTOUR [Concomitant]

REACTIONS (1)
  - Hospitalisation [None]
